FAERS Safety Report 24170062 (Version 6)
Quarter: 2025Q4

REPORT INFORMATION
  Report Type: Report from Study
  Country: US (occurrence: US)
  Receive Date: 20240803
  Receipt Date: 20251107
  Transmission Date: 20260117
  Serious: Yes (Hospitalization, Other)
  Sender: AMNEAL
  Company Number: US-AMNEAL PHARMACEUTICALS-2024-AMRX-02748

PATIENT
  Age: 73 Year
  Sex: Male

DRUGS (4)
  1. CARBIDOPA\LEVODOPA [Suspect]
     Active Substance: CARBIDOPA\LEVODOPA
     Indication: Parkinson^s disease
     Dosage: 03 CAPSULES BY MOUTH IN THE MORNING, 03 CAPSULES BY MOUTH AT NOON, AND 03 CAPSULES BY MOUTH AT NIGHT
     Route: 048
  2. CARBIDOPA\LEVODOPA [Suspect]
     Active Substance: CARBIDOPA\LEVODOPA
     Dosage: 195/48.75 MG, 4 CAPSULES AT 6AM AND 2PM, THEN 3 CAPSULES IN THE EVENING (TOTAL 11 CAPSULES A DAY)
     Route: 048
     Dates: start: 20241126
  3. CARBIDOPA\LEVODOPA [Suspect]
     Active Substance: CARBIDOPA\LEVODOPA
     Dosage: 48.75/195 MG, 3 CAPSULES, 3 /DAY
     Route: 048
  4. CARBIDOPA\LEVODOPA [Suspect]
     Active Substance: CARBIDOPA\LEVODOPA
     Dosage: 48.75/195 MG 2 CAPSULES IN MORNING, 2 IN AFTERNOON AND 2 IN NIGHT AT BED TIME (06:00, 14:00, AND 22:
     Route: 048

REACTIONS (6)
  - Intestinal obstruction [Unknown]
  - Hospitalisation [Unknown]
  - Hospitalisation [Unknown]
  - Hallucination [Unknown]
  - Product dose omission issue [Unknown]
  - Therapy cessation [Unknown]

NARRATIVE: CASE EVENT DATE: 20241121
